FAERS Safety Report 4542846-5 (Version None)
Quarter: 2004Q4

REPORT INFORMATION
  Report Type: 
  Country: None (occurrence: None)
  Receive Date: 20041229
  Receipt Date: 20041216
  Transmission Date: 20050328
  Serious: Yes (Other)
  Sender: FDA-Public Use
  Company Number: 2004113672

PATIENT
  Age: 61 Year
  Sex: Male
  Weight: 122.4712 kg

DRUGS (8)
  1. CELEBREX [Suspect]
     Indication: ARTHRITIS
     Dosage: 400 MG (200 MG, 2 IN 1 D), ORAL
     Route: 048
     Dates: end: 20040101
  2. LESCOL [Concomitant]
  3. FUROSEMIDE [Concomitant]
  4. MORPHINE SULFATE [Concomitant]
  5. DIGOXIN [Concomitant]
  6. AMIODARONE [Concomitant]
  7. FAMOTIDINE [Concomitant]
  8. DOCUSATE SODIUM [Concomitant]

REACTIONS (7)
  - BLOOD CREATININE INCREASED [None]
  - CARDIAC FAILURE CONGESTIVE [None]
  - CORONARY ARTERY SURGERY [None]
  - DIABETES MELLITUS [None]
  - GALLBLADDER DISORDER [None]
  - NAUSEA [None]
  - RENAL DISORDER [None]
